FAERS Safety Report 9735904 (Version 2)
Quarter: 2013Q4

REPORT INFORMATION
  Report Type: Spontaneous
  Country: US (occurrence: US)
  Receive Date: 20131206
  Receipt Date: 20131206
  Transmission Date: 20140711
  Serious: No
  Sender: FDA-Public Use
  Company Number: US-GILEAD-2009-0024034

PATIENT
  Sex: Female

DRUGS (15)
  1. LETAIRIS [Suspect]
     Indication: PULMONARY ARTERIAL HYPERTENSION
     Route: 048
     Dates: start: 20090424, end: 20090724
  2. LISINOPRIL [Concomitant]
  3. HYDROCHLOROTHIAZIDE [Concomitant]
  4. DIGOXIN [Concomitant]
  5. ASPIRIN [Concomitant]
  6. CARBIDOPA [Concomitant]
  7. LEVODOPA [Concomitant]
  8. ROPIRINOLE [Concomitant]
  9. ARICEPT [Concomitant]
  10. SEROQUEL [Concomitant]
  11. TRAZODONE [Concomitant]
  12. SINIMET [Concomitant]
  13. ALENDRONATE [Concomitant]
  14. POTASSIUM [Concomitant]
  15. MVI [Concomitant]

REACTIONS (1)
  - Hypotension [Recovered/Resolved]
